FAERS Safety Report 22915611 (Version 2)
Quarter: 2023Q4

REPORT INFORMATION
  Report Type: Report from Study
  Country: AR (occurrence: AR)
  Receive Date: 20230907
  Receipt Date: 20231007
  Transmission Date: 20240110
  Serious: Yes (Other)
  Sender: FDA-Public Use
  Company Number: AR-002147023-NVSC2023AR169826

PATIENT
  Age: 67 Year
  Sex: Female

DRUGS (6)
  1. KISQALI [Suspect]
     Active Substance: RIBOCICLIB
     Indication: Breast cancer metastatic
     Dosage: 600 MG, QD
     Route: 048
     Dates: start: 20190901
  2. KISQALI [Suspect]
     Active Substance: RIBOCICLIB
     Dosage: UNK
     Route: 065
     Dates: start: 20190901
  3. KISQALI [Suspect]
     Active Substance: RIBOCICLIB
     Dosage: UNK (STOPPED TAKING KISQALI ONLY IN THE MONTH OF JUN OF THE YEAR OF THIS REPORT)
     Route: 065
  4. KISQALI [Suspect]
     Active Substance: RIBOCICLIB
     Dosage: UNK (RESUMED TREATMENT IN THE FIRST DAY OF JUL)
     Route: 065
  5. LETROZOLE [Suspect]
     Active Substance: LETROZOLE
     Indication: Product used for unknown indication
     Dosage: UNK
     Route: 065
  6. LEVOTHYROXINE [Concomitant]
     Active Substance: LEVOTHYROXINE
     Indication: Hypothyroidism
     Dosage: 100 MG
     Route: 065

REACTIONS (21)
  - Syncope [Unknown]
  - Wound [Unknown]
  - Breast disorder [Unknown]
  - Hypertonic bladder [Unknown]
  - Hypertension [Unknown]
  - Insomnia [Unknown]
  - Weight decreased [Unknown]
  - Asthenia [Unknown]
  - Anaemia [Unknown]
  - Dizziness [Unknown]
  - Laboratory test abnormal [Unknown]
  - General physical health deterioration [Unknown]
  - Decreased immune responsiveness [Unknown]
  - Skin disorder [Unknown]
  - Mood altered [Unknown]
  - Tension [Unknown]
  - Stress [Unknown]
  - Nervousness [Unknown]
  - Memory impairment [Unknown]
  - Malaise [Unknown]
  - Drug ineffective [Unknown]

NARRATIVE: CASE EVENT DATE: 20230101
